FAERS Safety Report 11734423 (Version 11)
Quarter: 2021Q1

REPORT INFORMATION
  Report Type: Spontaneous
  Country: US (occurrence: US)
  Receive Date: 20151113
  Receipt Date: 20210105
  Transmission Date: 20210419
  Serious: Yes (Congenital Anomaly, Other)
  Sender: FDA-Public Use
  Company Number: PHEH2015US022858

PATIENT
  Age: 0 Day
  Sex: Male

DRUGS (5)
  1. ZOFRAN [Suspect]
     Active Substance: ONDANSETRON HYDROCHLORIDE
     Indication: FOETAL EXPOSURE DURING PREGNANCY
     Route: 064
  2. ONDANSETRON [Suspect]
     Active Substance: ONDANSETRON
     Indication: FOETAL EXPOSURE DURING PREGNANCY
     Route: 064
  3. ONDANSETRON. [Suspect]
     Active Substance: ONDANSETRON
     Indication: FOETAL EXPOSURE DURING PREGNANCY
     Dosage: MOTHER DOSE FREQUENCY: QD
     Route: 064
  4. ZOFRAN [Suspect]
     Active Substance: ONDANSETRON HYDROCHLORIDE
     Indication: FOETAL EXPOSURE DURING PREGNANCY
     Dosage: MOTHER DOSE FREQUENCY: QD
     Route: 064
  5. ONDANSETRON [Suspect]
     Active Substance: ONDANSETRON
     Indication: FOETAL EXPOSURE DURING PREGNANCY
     Route: 064

REACTIONS (39)
  - Congenital anomaly [Unknown]
  - Multiple congenital abnormalities [Unknown]
  - Heart disease congenital [Unknown]
  - Atrial septal defect [Unknown]
  - Hyperbilirubinaemia neonatal [Unknown]
  - Foetal exposure during pregnancy [Unknown]
  - Scar [Unknown]
  - Cardiac murmur [Unknown]
  - Cough [Unknown]
  - Haematuria [Unknown]
  - Hand-foot-and-mouth disease [Unknown]
  - Neck injury [Unknown]
  - Asthma [Unknown]
  - Pain [Unknown]
  - Eczema [Unknown]
  - Conjunctivitis [Unknown]
  - Otitis media [Unknown]
  - Transposition of the great vessels [Unknown]
  - Neonatal respiratory distress [Unknown]
  - Atelectasis neonatal [Unknown]
  - Upper respiratory tract infection [Unknown]
  - Jaundice neonatal [Unknown]
  - Disturbance of thermoregulation of newborn [Unknown]
  - Choking [Unknown]
  - Deafness neurosensory [Unknown]
  - Urticaria [Unknown]
  - Gastrooesophageal reflux disease [Unknown]
  - Pyrexia [Unknown]
  - Premature baby [Unknown]
  - Dermatitis atopic [Unknown]
  - Anxiety [Unknown]
  - Crying [Unknown]
  - Ear pain [Unknown]
  - Hypoplastic left heart syndrome [Unknown]
  - Hypoplastic right heart syndrome [Unknown]
  - Low birth weight baby [Unknown]
  - Anhedonia [Unknown]
  - Rhinitis [Unknown]
  - Face injury [Unknown]

NARRATIVE: CASE EVENT DATE: 20121015
